FAERS Safety Report 24120699 (Version 1)
Quarter: 2024Q3

REPORT INFORMATION
  Report Type: Spontaneous
  Country: US (occurrence: None)
  Receive Date: 20240718
  Receipt Date: 20240718
  Transmission Date: 20241017
  Serious: Yes (Other)
  Sender: Public
  Company Number: None

PATIENT
  Age: 4 Year
  Sex: Female
  Weight: 18 kg

DRUGS (1)
  1. RYPLAZIM [Suspect]
     Active Substance: PLASMINOGEN
     Dosage: OTHER FREQUENCY : EVERY 4-5 DAYS;?
     Route: 040
     Dates: start: 20240424

REACTIONS (1)
  - Swelling of eyelid [None]

NARRATIVE: CASE EVENT DATE: 20240626
